FAERS Safety Report 20698576 (Version 4)
Quarter: 2022Q2

REPORT INFORMATION
  Report Type: Report from Study
  Country: BR (occurrence: BR)
  Receive Date: 20220412
  Receipt Date: 20220611
  Transmission Date: 20220721
  Serious: Yes (Other)
  Sender: FDA-Public Use
  Company Number: BR-ABBVIE-22K-020-4352243-00

PATIENT
  Sex: Female
  Weight: 80 kg

DRUGS (9)
  1. RINVOQ [Suspect]
     Active Substance: UPADACITINIB
     Indication: Rheumatoid arthritis
     Dosage: IN THE MORNING
     Route: 048
     Dates: start: 20211018, end: 202204
  2. RINVOQ [Suspect]
     Active Substance: UPADACITINIB
     Dosage: IN THE MORNING
     Route: 048
     Dates: start: 20220505
  3. LEFLUNOMIDE [Concomitant]
     Active Substance: LEFLUNOMIDE
     Indication: Rheumatoid arthritis
     Route: 065
  4. LOSARTAN [Concomitant]
     Active Substance: LOSARTAN
     Indication: Hypertension
     Route: 065
  5. AMLODIPINE BESYLATE [Concomitant]
     Active Substance: AMLODIPINE BESYLATE
     Indication: Hypertension
  6. CHLORTHALIDONE [Concomitant]
     Active Substance: CHLORTHALIDONE
     Indication: Hypertension
  7. TYLEX [Concomitant]
     Indication: Pain
  8. ACETAMINOPHEN [Concomitant]
     Active Substance: ACETAMINOPHEN
     Indication: Pain
     Route: 048
  9. DIPYRONE [Concomitant]
     Active Substance: DIPYRONE
     Indication: Pain
     Route: 048

REACTIONS (1)
  - Arthralgia [Recovering/Resolving]
